FAERS Safety Report 5401930-4 (Version None)
Quarter: 2007Q3

REPORT INFORMATION
  Report Type: 
  Country: None (occurrence: None)
  Receive Date: 20070726
  Receipt Date: 20070710
  Transmission Date: 20080115
  Serious: Yes (Other)
  Sender: FDA-Public Use
  Company Number: 2007BM000078

PATIENT
  Age: 20 Year
  Sex: Female

DRUGS (6)
  1. PREDNISOLONE [Suspect]
     Indication: SYSTEMIC LUPUS ERYTHEMATOSUS
     Dosage: 7.5 MG;QD; 30 MG;QD; 40 MG;QD
     Dates: start: 19990101, end: 20020101
  2. PREDNISOLONE [Suspect]
     Indication: SYSTEMIC LUPUS ERYTHEMATOSUS
     Dosage: 7.5 MG;QD; 30 MG;QD; 40 MG;QD
     Dates: start: 20020101, end: 20020301
  3. PREDNISOLONE [Suspect]
     Indication: SYSTEMIC LUPUS ERYTHEMATOSUS
     Dosage: 7.5 MG;QD; 30 MG;QD; 40 MG;QD
     Dates: start: 20020301, end: 20030201
  4. PREDNISOLONE [Suspect]
     Indication: SYSTEMIC LUPUS ERYTHEMATOSUS
     Dosage: 7.5 MG;QD; 30 MG;QD; 40 MG;QD
     Dates: start: 20030201
  5. CHLORAMBUCIL (CHLORAMBUCIL) [Suspect]
     Indication: SYSTEMIC LUPUS ERYTHEMATOSUS
     Dosage: 4 MG; QD
     Dates: start: 20030201
  6. ORAPRED [Suspect]

REACTIONS (6)
  - ABDOMINAL SEPSIS [None]
  - ABDOMINAL WALL MASS [None]
  - CYTOMEGALOVIRUS ANTIGEN POSITIVE [None]
  - EPSTEIN-BARR VIRUS INFECTION [None]
  - INFECTION IN AN IMMUNOCOMPROMISED HOST [None]
  - LEIOMYOSARCOMA [None]
